FAERS Safety Report 11092007 (Version 2)
Quarter: 2015Q2

REPORT INFORMATION
  Report Type: Spontaneous
  Country: KR (occurrence: KR)
  Receive Date: 20150505
  Receipt Date: 20150515
  Transmission Date: 20150821
  Serious: Yes (Death, Life-Threatening, Hospitalization, Disabling, Other)
  Sender: FDA-Public Use
  Company Number: KR-MERCK-1505KOR000351

PATIENT
  Age: 67 Year
  Sex: Male
  Weight: 56.5 kg

DRUGS (18)
  1. MEGESTROL ACETATE. [Concomitant]
     Active Substance: MEGESTROL ACETATE
     Indication: APPETITE DISORDER
     Dosage: TOTAL DAILY DOSE: 20ML
     Route: 048
     Dates: start: 20130227, end: 20130310
  2. FENTANYL. [Concomitant]
     Active Substance: FENTANYL
     Indication: PAIN
     Dosage: TOTAL DAILY DOSE: 25 MCG/H
     Dates: start: 20130301, end: 20130310
  3. CIPROFLOXACIN. [Concomitant]
     Active Substance: CIPROFLOXACIN
     Indication: ANTIBIOTIC THERAPY
     Dosage: TOTAL DAILY DOSE: 1000 MG
     Route: 048
     Dates: start: 20130308, end: 20130310
  4. PIPERACILLIN AND TAZOBACTAM [Concomitant]
     Active Substance: PIPERACILLIN SODIUM\TAZOBACTAM SODIUM
     Indication: PYREXIA
     Dosage: TOTAL DAILY DOSE 13.5 G
     Route: 042
     Dates: start: 20130227, end: 20130310
  5. REBAMIPIDE [Concomitant]
     Active Substance: REBAMIPIDE
     Indication: GASTRIC DISORDER
     Dosage: TOTAL DAILY DOSE: 300 MG
     Route: 048
     Dates: start: 20130227, end: 20130310
  6. IDARUBICIN HYDROCHLORIDE. [Concomitant]
     Active Substance: IDARUBICIN HYDROCHLORIDE
     Indication: CHEMOTHERAPY
     Dosage: 30 MG/M2 FOR THREE DAYS; TOTAL DAILY DOSE: 19.08MG
     Route: 042
     Dates: start: 20130227, end: 20130301
  7. CYTARABINE. [Concomitant]
     Active Substance: CYTARABINE
     Indication: CHEMOTHERAPY
     Dosage: 100 MG/M2, FOR 5 DAYS; TOTAL DAILY DOSE: 159MG
     Route: 042
     Dates: start: 20130227, end: 20130305
  8. FUROSEMIDE. [Concomitant]
     Active Substance: FUROSEMIDE
     Indication: DIURETIC THERAPY
     Dosage: TOTAL DAILY DOSE: 40 MG, 60 MG
     Route: 042
     Dates: start: 20130227, end: 20130304
  9. URSODIOL. [Concomitant]
     Active Substance: URSODIOL
     Indication: HEPATIC FUNCTION ABNORMAL
     Dosage: TOTAL DAILY DOSE: 300MG
     Route: 048
     Dates: start: 20130227, end: 20130310
  10. RAMOSETRON [Concomitant]
     Active Substance: RAMOSETRON HYDROCHLORIDE
     Indication: GASTRIC DISORDER
     Dosage: TOTAL DAILY DOSE: 0.1MG
     Route: 048
     Dates: start: 20130302, end: 20130303
  11. PIPERACILLIN AND TAZOBACTAM [Concomitant]
     Active Substance: PIPERACILLIN SODIUM\TAZOBACTAM SODIUM
     Indication: ANTIBIOTIC THERAPY
  12. ALLOPURINOL. [Concomitant]
     Active Substance: ALLOPURINOL
     Indication: DRUG THERAPY
     Dosage: TOTAL DAILY DOSE: 30MG
     Route: 048
     Dates: start: 20130227, end: 20130305
  13. MAGNESIUM HYDROXIDE. [Concomitant]
     Active Substance: MAGNESIUM HYDROXIDE
     Indication: CONSTIPATION
     Dosage: TOTAL DAILY DOSE: 1500MG
     Route: 048
     Dates: start: 20130227, end: 20130310
  14. NOXAFIL [Suspect]
     Active Substance: POSACONAZOLE
     Indication: ANTIFUNGAL PROPHYLAXIS
     Dosage: 200 MG, 3 TIMES A DAY DURING MEAL
     Route: 048
     Dates: start: 20130227, end: 20130310
  15. DEXAMETHASONE. [Concomitant]
     Active Substance: DEXAMETHASONE
     Indication: DRUG THERAPY
     Dosage: TOTAL DAILY DOSE: 5MG
     Route: 042
     Dates: start: 20130228, end: 20130305
  16. ACETAMINOPHEN (+) TRAMADOL HYDROCHLORIDE [Concomitant]
     Active Substance: ACETAMINOPHEN\TRAMADOL HYDROCHLORIDE
     Indication: PAIN
     Dosage: UNK
     Route: 048
     Dates: start: 20130305, end: 20130308
  17. RABEPRAZOLE SODIUM. [Concomitant]
     Active Substance: RABEPRAZOLE SODIUM
     Indication: GASTRIC DISORDER
     Dosage: TOTAL DAILY DOSE: 10MG
     Route: 048
     Dates: start: 20130227, end: 20130301
  18. RAMOSETRON [Concomitant]
     Active Substance: RAMOSETRON HYDROCHLORIDE
     Indication: GASTRIC DISORDER
     Dosage: TOTAL DAILY DOSE: 0.3MG
     Route: 042
     Dates: start: 20130227, end: 20130301

REACTIONS (2)
  - Drug ineffective [Unknown]
  - Zygomycosis [Fatal]

NARRATIVE: CASE EVENT DATE: 20130310
